FAERS Safety Report 24958617 (Version 1)
Quarter: 2025Q1

REPORT INFORMATION
  Report Type: Spontaneous
  Country: US (occurrence: US)
  Receive Date: 20250212
  Receipt Date: 20250212
  Transmission Date: 20250409
  Serious: Yes (Hospitalization, Other)
  Sender: SANDOZ
  Company Number: US-SANDOZ-SDZ2023US003856

PATIENT
  Age: 41 Year
  Sex: Female

DRUGS (3)
  1. MYCOPHENOLATE MOFETIL [Concomitant]
     Active Substance: MYCOPHENOLATE MOFETIL
     Indication: Product used for unknown indication
     Route: 065
  2. NIRMATRELVIR\RITONAVIR [Interacting]
     Active Substance: NIRMATRELVIR\RITONAVIR
     Indication: COVID-19
     Route: 065
  3. TACROLIMUS [Interacting]
     Active Substance: TACROLIMUS
     Indication: Renal transplant
     Route: 048

REACTIONS (5)
  - Acute kidney injury [Unknown]
  - Sepsis [Unknown]
  - Immunosuppressant drug level increased [Unknown]
  - Labelled drug-drug interaction issue [Unknown]
  - COVID-19 [Unknown]
